FAERS Safety Report 26028527 (Version 2)
Quarter: 2025Q4

REPORT INFORMATION
  Report Type: Spontaneous
  Country: US (occurrence: US)
  Receive Date: 20251111
  Receipt Date: 20251119
  Transmission Date: 20260118
  Serious: Yes (Hospitalization)
  Sender: TEVA
  Company Number: US-TEVA-VS-3389504

PATIENT
  Age: 45 Year
  Sex: Male

DRUGS (2)
  1. FLUVOXAMINE [Interacting]
     Active Substance: FLUVOXAMINE
     Indication: Major depression
     Route: 065
  2. BUPRENORPHINE\NALOXONE [Concomitant]
     Active Substance: BUPRENORPHINE\NALOXONE
     Indication: Withdrawal syndrome
     Dosage: THREE TIMES DAILY
     Route: 065

REACTIONS (3)
  - Serotonin syndrome [Recovered/Resolved]
  - Food interaction [Recovered/Resolved]
  - Drug interaction [Recovered/Resolved]
